FAERS Safety Report 6803633-8 (Version None)
Quarter: 2010Q2

REPORT INFORMATION
  Report Type: 
  Country: None (occurrence: None)
  Receive Date: 20100628
  Receipt Date: 20100628
  Transmission Date: 20101027
  Serious: Yes (Hospitalization)
  Sender: FDA-Public Use
  Company Number: None

PATIENT
  Sex: Male
  Weight: 61.2356 kg

DRUGS (2)
  1. LEVAQUIN [Suspect]
     Indication: CYTOLOGY
     Dates: start: 20100510, end: 20100510
  2. LEVAQUIN [Suspect]
     Indication: INFECTION PROPHYLAXIS
     Dates: start: 20100510, end: 20100510

REACTIONS (2)
  - DIZZINESS [None]
  - GAIT DISTURBANCE [None]
